FAERS Safety Report 13967632 (Version 1)
Quarter: 2017Q3

REPORT INFORMATION
  Report Type: Spontaneous
  Country: US (occurrence: US)
  Receive Date: 20170914
  Receipt Date: 20170914
  Transmission Date: 20171128
  Serious: Yes (Death, Hospitalization)
  Sender: FDA-Public Use
  Company Number: PHEH2017US029525

PATIENT
  Sex: Female

DRUGS (2)
  1. TYKERB [Suspect]
     Active Substance: LAPATINIB DITOSYLATE
     Indication: BREAST CANCER FEMALE
     Dosage: 5 DF, QD
     Route: 048
     Dates: start: 20170616
  2. TYKERB [Suspect]
     Active Substance: LAPATINIB DITOSYLATE
     Indication: METASTASIS

REACTIONS (4)
  - Metastases to meninges [Fatal]
  - Malignant neoplasm progression [Fatal]
  - Breast cancer metastatic [Fatal]
  - Metastases to central nervous system [Fatal]
